FAERS Safety Report 11082036 (Version 3)
Quarter: 2015Q3

REPORT INFORMATION
  Report Type: Spontaneous
  Country: US (occurrence: US)
  Receive Date: 20150501
  Receipt Date: 20150910
  Transmission Date: 20151125
  Serious: Yes (Hospitalization)
  Sender: FDA-Public Use
  Company Number: US-JNJFOC-20150421025

PATIENT
  Sex: Female
  Weight: 107.5 kg

DRUGS (12)
  1. XARELTO [Suspect]
     Active Substance: RIVAROXABAN
     Indication: CEREBROVASCULAR ACCIDENT PROPHYLAXIS
     Route: 048
     Dates: start: 20140206, end: 20140222
  2. VENTOLIN HFA [Concomitant]
     Active Substance: ALBUTEROL SULFATE
     Route: 055
  3. NORVASC [Concomitant]
     Active Substance: AMLODIPINE BESYLATE
     Route: 048
  4. NITROSTAT [Concomitant]
     Active Substance: NITROGLYCERIN
     Dosage: MAY REPEAT DOSE EVERY 5 MIN. AS??NEEDED UP TO 3 DOSES IN 15 MIN.
     Route: 060
  5. XARELTO [Suspect]
     Active Substance: RIVAROXABAN
     Indication: DEEP VEIN THROMBOSIS
     Route: 048
     Dates: start: 20140206, end: 20140222
  6. KEFLEX [Concomitant]
     Active Substance: CEPHALEXIN
     Route: 048
  7. XARELTO [Suspect]
     Active Substance: RIVAROXABAN
     Indication: ATRIAL FIBRILLATION
     Route: 048
     Dates: start: 20140206, end: 20140222
  8. PRAVACHOL [Concomitant]
     Active Substance: PRAVASTATIN SODIUM
     Route: 048
  9. VALIUM [Concomitant]
     Active Substance: DIAZEPAM
     Route: 048
  10. COMPAZINE [Concomitant]
     Active Substance: PROCHLORPERAZINE MALEATE
     Indication: NAUSEA
     Route: 048
  11. BETAPACE [Concomitant]
     Active Substance: SOTALOL HYDROCHLORIDE
     Route: 048
  12. FORTAMET [Concomitant]
     Active Substance: METFORMIN HYDROCHLORIDE
     Route: 048

REACTIONS (14)
  - Polycythaemia [Recovering/Resolving]
  - Malaise [Unknown]
  - Headache [Recovered/Resolved]
  - Balance disorder [Unknown]
  - Pain [Unknown]
  - Faecal incontinence [Unknown]
  - Decreased activity [Unknown]
  - Haemorrhagic anaemia [Recovering/Resolving]
  - Lower gastrointestinal haemorrhage [Recovering/Resolving]
  - Mood altered [Unknown]
  - Memory impairment [Unknown]
  - Decreased appetite [Unknown]
  - Dizziness [Recovered/Resolved]
  - Internal haemorrhage [Unknown]

NARRATIVE: CASE EVENT DATE: 2014
